FAERS Safety Report 15552510 (Version 4)
Quarter: 2019Q3

REPORT INFORMATION
  Report Type: Report from Study
  Country: US (occurrence: US)
  Receive Date: 20181025
  Receipt Date: 20190730
  Transmission Date: 20191004
  Serious: Yes (Hospitalization)
  Sender: FDA-Public Use
  Company Number: US-ACTELION-A-US2018-179126

PATIENT
  Sex: Male

DRUGS (4)
  1. MIDODRINE [Concomitant]
     Active Substance: MIDODRINE
  2. BUMEX [Concomitant]
     Active Substance: BUMETANIDE
     Dosage: UNK, PRN
  3. OPSUMIT [Suspect]
     Active Substance: MACITENTAN
     Indication: PULMONARY ARTERIAL HYPERTENSION
     Dosage: 10 MG, QD
     Route: 048
     Dates: start: 20180102
  4. SPIRONOLACTONE. [Concomitant]
     Active Substance: SPIRONOLACTONE

REACTIONS (8)
  - Dizziness [Unknown]
  - Blood pressure fluctuation [Unknown]
  - Cardiac disorder [Unknown]
  - Eye operation [Unknown]
  - Hospitalisation [Unknown]
  - Heart transplant [Unknown]
  - Migraine [Unknown]
  - Dehydration [Unknown]
